FAERS Safety Report 4798138-2 (Version None)
Quarter: 2005Q4

REPORT INFORMATION
  Report Type: 
  Country: None (occurrence: None)
  Receive Date: 20051011
  Receipt Date: 20050928
  Transmission Date: 20060501
  Serious: Yes (Hospitalization)
  Sender: FDA-Public Use
  Company Number: 2005PV002504

PATIENT
  Sex: Female

DRUGS (5)
  1. BYETTA [Suspect]
     Dosage: 5 MCG ;  SC
     Route: 058
     Dates: start: 20050901
  2. METFORMIN [Concomitant]
  3. LANTUS [Concomitant]
  4. HUMALOG [Concomitant]
  5. TUMS ULTRA [Concomitant]

REACTIONS (4)
  - BLOOD CALCIUM INCREASED [None]
  - DEHYDRATION [None]
  - NAUSEA [None]
  - VOMITING [None]
